FAERS Safety Report 15930111 (Version 1)
Quarter: 2019Q1

REPORT INFORMATION
  Report Type: Report from Study
  Country: None (occurrence: US)
  Receive Date: 20190206
  Receipt Date: 20190206
  Transmission Date: 20190417
  Serious: Yes (Hospitalization)
  Sender: FDA-Public Use
  Company Number: US-ABBVIE-19S-163-2651136-00

PATIENT
  Age: 36 Year
  Sex: Female

DRUGS (1)
  1. LUPRON [Suspect]
     Active Substance: LEUPROLIDE ACETATE
     Indication: PRODUCT USED FOR UNKNOWN INDICATION
     Route: 050

REACTIONS (9)
  - Fatigue [Unknown]
  - Uterine leiomyoma [Unknown]
  - Vaginal haemorrhage [Unknown]
  - Vaginal haemorrhage [Unknown]
  - Gastroenteritis [Unknown]
  - Iron deficiency anaemia [Unknown]
  - Uterine leiomyoma [Unknown]
  - Uterine leiomyoma [Unknown]
  - Anaemia [Unknown]

NARRATIVE: CASE EVENT DATE: 20180529
